FAERS Safety Report 4489651-6 (Version None)
Quarter: 2004Q4

REPORT INFORMATION
  Report Type: 
  Country: None (occurrence: None)
  Receive Date: 20041101
  Receipt Date: 20040923
  Transmission Date: 20050328
  Serious: Yes (Other)
  Sender: FDA-Public Use
  Company Number: PHEH2004US10228

PATIENT
  Age: 52 Year
  Sex: Male

DRUGS (1)
  1. DESFERAL [Suspect]
     Indication: HAEMOLYTIC ANAEMIA
     Dosage: 2 G/ 2XWEEK
     Dates: start: 19960101

REACTIONS (5)
  - EYE DISORDER [None]
  - IRITIS [None]
  - MACULAR DEGENERATION [None]
  - SCOTOMA [None]
  - VISION BLURRED [None]
